FAERS Safety Report 9736280 (Version 1)
Quarter: 2013Q4

REPORT INFORMATION
  Report Type: Spontaneous
  Country: US (occurrence: None)
  Receive Date: 20131204
  Receipt Date: 20131204
  Transmission Date: 20140711
  Serious: Yes (Death)
  Sender: FDA-Public Use
  Company Number: US-AIKEM-000279

PATIENT
  Sex: Female

DRUGS (11)
  1. METFORMIN (METFORMIN) [Suspect]
     Route: 048
  2. CLONIDINE (CLONIDINE) [Suspect]
     Route: 048
  3. METOPROLOL (METOPROLOL) [Suspect]
     Route: 048
  4. NICARDIPINE [Suspect]
     Route: 048
  5. INSULIN (INSULIN) [Suspect]
  6. HYDROCODONE/ACETAMINOPHEN [Suspect]
     Route: 048
  7. CYCLOBENZAPRINE (CYCLOBENZAPRINE) [Suspect]
     Route: 048
  8. LISINOPRIL(LISINOPRIL) [Suspect]
     Route: 048
  9. HYDROCHLOROTHIAZIDE (HYDROCHLOROTHIAZIDE) [Suspect]
     Route: 048
  10. VITAMIN D (VITAMIN D) [Suspect]
     Route: 048
  11. AMOXICILLIN(AMOXICILLIN) [Suspect]
     Route: 048

REACTIONS (3)
  - Completed suicide [None]
  - Exposure via ingestion [None]
  - Cardio-respiratory arrest [None]
